FAERS Safety Report 5973500-0 (Version None)
Quarter: 2008Q4

REPORT INFORMATION
  Report Type: 
  Country: None (occurrence: None)
  Receive Date: 20081201
  Receipt Date: 20081119
  Transmission Date: 20090506
  Serious: Yes (Hospitalization)
  Sender: FDA-Public Use
  Company Number: JP-AVENTIS-200813605JP

PATIENT
  Age: 81 Year
  Sex: Male

DRUGS (3)
  1. LASIX [Suspect]
  2. GLYCYRRHIZIN [Suspect]
  3. LICORICE EXTRACT [Suspect]

REACTIONS (1)
  - PSEUDOALDOSTERONISM [None]
